FAERS Safety Report 5240386-1 (Version None)
Quarter: 2007Q1

REPORT INFORMATION
  Report Type: 
  Country: None (occurrence: None)
  Receive Date: 20061208
  Receipt Date: 20050721
  Transmission Date: 20070707
  Serious: Yes (Other)
  Sender: FDA-Public Use
  Company Number: 2005UW10875

PATIENT
  Age: 56 Year
  Sex: Female

DRUGS (5)
  1. CRESTOR [Suspect]
     Indication: BLOOD CHOLESTEROL INCREASED
     Dosage: 10 MG PO
     Route: 048
     Dates: start: 20050701
  2. PROCARDIA XL [Concomitant]
  3. PROTONIX [Concomitant]
  4. SENTINEL PATCH [Concomitant]
  5. TRAZODONE HCL [Concomitant]

REACTIONS (5)
  - ANGINA PECTORIS [None]
  - ARTHRALGIA [None]
  - CONSTIPATION [None]
  - DYSPNOEA [None]
  - PYREXIA [None]
